FAERS Safety Report 25146171 (Version 1)
Quarter: 2025Q2

REPORT INFORMATION
  Report Type: Spontaneous
  Country: US (occurrence: None)
  Receive Date: 20250401
  Receipt Date: 20250401
  Transmission Date: 20250716
  Serious: Yes (Life-Threatening, Hospitalization)
  Sender: FDA-CTU
  Company Number: None

PATIENT
  Age: 53 Year
  Sex: Female
  Weight: 117.48 kg

DRUGS (7)
  1. KEYTRUDA [Suspect]
     Active Substance: PEMBROLIZUMAB
     Indication: Neoplasm
     Dosage: FREQUENCY : EVERY THREE WEEKS;?OTHER ROUTE : IV INFUSION INTO A VEIN OVER A PERIOD OF TIME;?
     Route: 050
     Dates: start: 20240923, end: 20250108
  2. AMLODIPINE [Concomitant]
     Active Substance: AMLODIPINE BESYLATE
  3. HYDROCHLOROTHIAZIDE [Concomitant]
     Active Substance: HYDROCHLOROTHIAZIDE
  4. VALSARTAN [Concomitant]
     Active Substance: VALSARTAN
  5. ASPIRIN [Concomitant]
     Active Substance: ASPIRIN
  6. LANTUS [Concomitant]
     Active Substance: INSULIN GLARGINE
  7. Novoolog [Concomitant]

REACTIONS (8)
  - Fatigue [None]
  - Pancreatic disorder [None]
  - Blood glucose increased [None]
  - Vomiting [None]
  - Dry mouth [None]
  - Dyspnoea exertional [None]
  - Speech disorder [None]
  - Diabetic ketoacidosis [None]

NARRATIVE: CASE EVENT DATE: 20250114
